FAERS Safety Report 25409056 (Version 2)
Quarter: 2025Q2

REPORT INFORMATION
  Report Type: Spontaneous
  Country: FR (occurrence: FR)
  Receive Date: 20250607
  Receipt Date: 20250624
  Transmission Date: 20250716
  Serious: Yes (Other)
  Sender: AUROBINDO
  Company Number: FR-AUROBINDO-AUR-APL-2025-026368

PATIENT
  Age: 15 Year
  Sex: Male

DRUGS (5)
  1. BISOPROLOL [Suspect]
     Active Substance: BISOPROLOL
     Indication: Atrial flutter
     Dosage: 1.25 MILLIGRAM, ONCE A DAY (1.25 MILLIGRAM(S), 1 IN 1 DAY)
     Route: 065
  2. FLECAINIDE [Suspect]
     Active Substance: FLECAINIDE
     Indication: Atrial flutter
     Route: 065
  3. ATROPINE [Suspect]
     Active Substance: ATROPINE
     Indication: Atrial flutter
     Dosage: 2 MILLIGRAM, ONCE A DAY
     Route: 065
  4. FLECAINIDE [Concomitant]
     Active Substance: FLECAINIDE
     Indication: Atrial flutter
     Dosage: 120 MILLIGRAM, ONCE A DAY
     Route: 065
  5. RIVAROXABAN [Concomitant]
     Active Substance: RIVAROXABAN
     Indication: Atrial flutter
     Route: 065

REACTIONS (9)
  - Atrial fibrillation [Recovered/Resolved]
  - Bradycardia [Recovered/Resolved]
  - Sinus node dysfunction [Recovered/Resolved]
  - Overdose [Unknown]
  - Drug ineffective [Unknown]
  - Chronotropic incompetence [Recovered/Resolved]
  - Intentional product use issue [Recovered/Resolved]
  - Product use issue [Recovered/Resolved]
  - Off label use [Recovered/Resolved]
